FAERS Safety Report 15643855 (Version 1)
Quarter: 2018Q4

REPORT INFORMATION
  Report Type: Spontaneous
  Country: JP (occurrence: JP)
  Receive Date: 20181121
  Receipt Date: 20181121
  Transmission Date: 20190205
  Serious: Yes (Hospitalization, Other)
  Sender: FDA-Public Use
  Company Number: JP-GILEAD-2018-0374103

PATIENT
  Age: 80 Year
  Sex: Male
  Weight: 48 kg

DRUGS (8)
  1. AMIODARONE HYDROCHLORIDE. [Suspect]
     Active Substance: AMIODARONE HYDROCHLORIDE
     Indication: PRODUCT USED FOR UNKNOWN INDICATION
     Dosage: UNK
     Route: 065
     Dates: start: 20181024, end: 20181113
  2. PITAVASTATIN. [Concomitant]
     Active Substance: PITAVASTATIN CALCIUM
  3. ARTIST [Concomitant]
     Active Substance: CARVEDILOL
  4. TAKECAB [Concomitant]
     Active Substance: VONOPRAZAN FUMURATE
  5. AMLODIPINE [Concomitant]
     Active Substance: AMLODIPINE BESYLATE
  6. LIXIANA [Concomitant]
     Active Substance: EDOXABAN TOSYLATE
  7. HARVONI [Suspect]
     Active Substance: LEDIPASVIR\SOFOSBUVIR
     Indication: PRODUCT USED FOR UNKNOWN INDICATION
     Dosage: UNK
     Route: 065
     Dates: start: 20181022
  8. PLAVIX [Concomitant]
     Active Substance: CLOPIDOGREL BISULFATE

REACTIONS (5)
  - Syncope [Recovered/Resolved]
  - Physical deconditioning [Not Recovered/Not Resolved]
  - Bradycardia [Not Recovered/Not Resolved]
  - Skin abrasion [Recovered/Resolved]
  - Prothrombin time shortened [Unknown]

NARRATIVE: CASE EVENT DATE: 20181026
